FAERS Safety Report 9240223 (Version 1)
Quarter: 2013Q2

REPORT INFORMATION
  Report Type: Spontaneous
  Country: US (occurrence: None)
  Receive Date: 20130418
  Receipt Date: 20130418
  Transmission Date: 20140414
  Serious: Yes (Hospitalization)
  Sender: FDA-Public Use
  Company Number: None

PATIENT
  Age: 55 Year
  Sex: Male

DRUGS (8)
  1. PEGASYS [Suspect]
     Indication: HEPATITIS C
     Dates: start: 20120802, end: 20130406
  2. RIBAVIRIN [Suspect]
     Indication: HEPATITIS C
     Route: 048
     Dates: start: 20120802, end: 20130406
  3. POTASSIUM CHLORIDE [Concomitant]
  4. FUROSEMIDE [Concomitant]
  5. ATENOLOL [Concomitant]
  6. LOSARTAN [Concomitant]
  7. AMLODIPINE [Concomitant]
  8. TRAMADOL [Concomitant]

REACTIONS (2)
  - Psychotic disorder [None]
  - Homicidal ideation [None]
